FAERS Safety Report 21614776 (Version 4)
Quarter: 2023Q1

REPORT INFORMATION
  Report Type: Spontaneous
  Country: US (occurrence: US)
  Receive Date: 20221118
  Receipt Date: 20230228
  Transmission Date: 20230418
  Serious: No
  Sender: FDA-Public Use
  Company Number: US-PFIZER INC-PV202200105683

PATIENT
  Age: 75 Year
  Sex: Male

DRUGS (2)
  1. INLYTA [Suspect]
     Active Substance: AXITINIB
     Dosage: 5 MG, 2X/DAY (Q12H)
     Dates: start: 202210, end: 2022
  2. INLYTA [Suspect]
     Active Substance: AXITINIB
     Dosage: 5 MG, 1X/DAY
     Dates: start: 202211

REACTIONS (9)
  - Dysphonia [Recovering/Resolving]
  - Fatigue [Recovering/Resolving]
  - Localised infection [Recovered/Resolved]
  - Nasopharyngitis [Unknown]
  - Asthma [Unknown]
  - Blood pressure increased [Unknown]
  - Infection [Unknown]
  - Cough [Unknown]
  - Off label use [Unknown]

NARRATIVE: CASE EVENT DATE: 20220101
